FAERS Safety Report 9205893 (Version 1)
Quarter: 2013Q2

REPORT INFORMATION
  Report Type: Spontaneous
  Country: GB (occurrence: None)
  Receive Date: 20130401
  Receipt Date: 20130401
  Transmission Date: 20140414
  Serious: Yes (Disabling, Other)
  Sender: FDA-Public Use
  Company Number: E2B_00000682

PATIENT
  Age: 36 Year
  Sex: Female
  Weight: 101.6 kg

DRUGS (5)
  1. QUETIAPINE FUMARATE [Suspect]
     Indication: BIPOLAR I DISORDER
     Route: 048
     Dates: start: 20061001
  2. ZOPICLONE (ZOPICLONE) [Concomitant]
  3. COD LIVER OIL [Concomitant]
  4. SODIUM HALURONATE (CLINITAS) [Concomitant]
  5. BECLOMETASONE DIPROPIONATE (BECONASE) [Concomitant]

REACTIONS (3)
  - Agoraphobia [None]
  - Weight increased [None]
  - Exercise tolerance decreased [None]
